FAERS Safety Report 10973453 (Version 1)
Quarter: 2015Q2

REPORT INFORMATION
  Report Type: Spontaneous
  Country: FR (occurrence: FR)
  Receive Date: 20150401
  Receipt Date: 20150401
  Transmission Date: 20150821
  Serious: Yes (Hospitalization)
  Sender: FDA-Public Use
  Company Number: FR-009507513-1503FRA014702

PATIENT
  Age: 83 Year
  Sex: Male

DRUGS (8)
  1. COAPROVEL [Suspect]
     Active Substance: HYDROCHLOROTHIAZIDE\IRBESARTAN
     Indication: HYPERTENSION
     Dosage: 1 DF, QD
     Route: 048
     Dates: start: 201404, end: 20150310
  2. SOTALEX [Concomitant]
     Active Substance: SOTALOL
     Dosage: 80 MG, BID
     Route: 048
  3. COUMADIN [Suspect]
     Active Substance: WARFARIN SODIUM
     Indication: ATRIAL FIBRILLATION
     Dosage: 2 MG, QD
     Route: 048
     Dates: start: 201402, end: 20150309
  4. LANTUS [Suspect]
     Active Substance: INSULIN GLARGINE
     Dosage: 22 IU, QD
     Route: 058
     Dates: start: 201402, end: 20150310
  5. LANZOR [Suspect]
     Active Substance: LANSOPRAZOLE
     Dosage: 15 MG, QD, GASTRO RESISTANT MICRO GRANULES IN CAPSULE
     Route: 048
     Dates: end: 20150310
  6. JANUMET [Suspect]
     Active Substance: METFORMIN HYDROCHLORIDE\SITAGLIPTIN PHOSPHATE
     Indication: TYPE 2 DIABETES MELLITUS
     Dosage: 1 DF, BID
     Route: 048
     Dates: start: 201404, end: 20150313
  7. ARESTAL [Suspect]
     Active Substance: LOPERAMIDE OXIDE
     Dosage: 1 MG, BID
     Route: 048
     Dates: end: 20150310
  8. ALLOPURINOL. [Suspect]
     Active Substance: ALLOPURINOL
     Dosage: 200 MG, QD
     Route: 048
     Dates: start: 2014

REACTIONS (6)
  - Thrombocytopenia [Not Recovered/Not Resolved]
  - Thrombocytopenic purpura [Not Recovered/Not Resolved]
  - Haematoma [Not Recovered/Not Resolved]
  - Haematuria [Unknown]
  - Gingival bleeding [Unknown]
  - Rectal haemorrhage [Unknown]

NARRATIVE: CASE EVENT DATE: 20150308
